FAERS Safety Report 25582530 (Version 1)
Quarter: 2025Q3

REPORT INFORMATION
  Report Type: Spontaneous
  Country: GB (occurrence: GB)
  Receive Date: 20250720
  Receipt Date: 20250720
  Transmission Date: 20251020
  Serious: Yes (Other)
  Sender: AUROBINDO
  Company Number: GB-MHRA-MED-202507071004521000-SHZCM

PATIENT
  Sex: Female
  Weight: 54 kg

DRUGS (2)
  1. METRONIDAZOLE [Suspect]
     Active Substance: METRONIDAZOLE
     Indication: Adverse drug reaction
     Dosage: 400 MILLIGRAM, 3 TIMES A DAY
     Route: 065
     Dates: start: 20250629, end: 20250703
  2. NYSTATIN [Suspect]
     Active Substance: NYSTATIN
     Indication: Product used for unknown indication
     Dosage: 400 MILLIGRAM, 3 TIMES A DAY
     Route: 065
     Dates: start: 20250629, end: 20250703

REACTIONS (3)
  - Fatigue [Not Recovered/Not Resolved]
  - Lethargy [Unknown]
  - Dizziness [Unknown]

NARRATIVE: CASE EVENT DATE: 20250704
